FAERS Safety Report 16254906 (Version 1)
Quarter: 2019Q2

REPORT INFORMATION
  Report Type: Spontaneous
  Country: US (occurrence: US)
  Receive Date: 20190430
  Receipt Date: 20190430
  Transmission Date: 20190711
  Serious: Yes (Other)
  Sender: FDA-Public Use
  Company Number: US-ELI_LILLY_AND_COMPANY-US201904013581

PATIENT
  Sex: Female

DRUGS (6)
  1. HUMALOG [Suspect]
     Active Substance: INSULIN LISPRO
     Dosage: 25 IU, EACH EVENING
     Route: 058
  2. HUMALOG [Suspect]
     Active Substance: INSULIN LISPRO
     Indication: TYPE 2 DIABETES MELLITUS
     Dosage: 22 IU, BID (MORNING AND AFTERNOON)
     Route: 058
     Dates: start: 2011
  3. LEVEMIR [Concomitant]
     Active Substance: INSULIN DETEMIR
     Indication: TYPE 2 DIABETES MELLITUS
     Dosage: 85 IU, DAILY (NIGHT)
  4. HUMALOG [Suspect]
     Active Substance: INSULIN LISPRO
     Dosage: 22 IU, BID (MORNING AND AFTERNOON)
     Route: 058
  5. HUMALOG [Suspect]
     Active Substance: INSULIN LISPRO
     Dosage: 25 IU, EACH EVENING
     Route: 058
     Dates: start: 2011
  6. GLUCOPHAGE [Suspect]
     Active Substance: METFORMIN HYDROCHLORIDE
     Indication: PRODUCT USED FOR UNKNOWN INDICATION
     Dosage: UNK, UNKNOWN
     Route: 065

REACTIONS (3)
  - Blood glucose abnormal [Not Recovered/Not Resolved]
  - Renal failure [Not Recovered/Not Resolved]
  - Kidney hypermobility [Unknown]

NARRATIVE: CASE EVENT DATE: 2017
